FAERS Safety Report 6160353-3 (Version None)
Quarter: 2009Q2

REPORT INFORMATION
  Report Type: 
  Country: None (occurrence: None)
  Receive Date: 20090416
  Receipt Date: 20090402
  Transmission Date: 20091009
  Serious: Yes (Life-Threatening, Other)
  Sender: FDA-Public Use
  Company Number: 2009000340

PATIENT
  Age: 77 Year
  Sex: Male

DRUGS (2)
  1. ERLOTINIB (ERLOTINIB) (TABLET) (ERLOTINIB) [Suspect]
     Indication: PANCREATIC CARCINOMA METASTATIC
     Dosage: (100 MG, QD), ORAL
     Route: 048
     Dates: start: 20081223
  2. GEMCITABINE [Suspect]
     Indication: PANCREATIC CARCINOMA METASTATIC
     Dosage: (1320 MG,QW), INTRAVENOUS
     Route: 042
     Dates: start: 20081223

REACTIONS (5)
  - ANAEMIA [None]
  - BLOOD CALCIUM DECREASED [None]
  - HYPOTENSION [None]
  - PLATELET COUNT DECREASED [None]
  - TROPONIN I INCREASED [None]
